FAERS Safety Report 15370080 (Version 2)
Quarter: 2018Q3

REPORT INFORMATION
  Report Type: Spontaneous
  Country: JP (occurrence: JP)
  Receive Date: 20180911
  Receipt Date: 20180926
  Transmission Date: 20181010
  Serious: Yes (Other)
  Sender: FDA-Public Use
  Company Number: PHHY2018JP057503

PATIENT
  Age: 19 Year
  Sex: Female

DRUGS (1)
  1. OXCARBAZEPINE. [Suspect]
     Active Substance: OXCARBAZEPINE
     Indication: PRODUCT USED FOR UNKNOWN INDICATION
     Route: 065

REACTIONS (10)
  - Laboratory test abnormal [Unknown]
  - Nasopharyngitis [Unknown]
  - Urinary tract infection [Recovering/Resolving]
  - Eczema [Unknown]
  - Blood uric acid increased [Recovering/Resolving]
  - Eczema [Recovered/Resolved]
  - Dacryocystitis [Recovering/Resolving]
  - Impetigo [Recovered/Resolved]
  - Hordeolum [Recovered/Resolved]
  - Constipation [Recovering/Resolving]

NARRATIVE: CASE EVENT DATE: 201802
